FAERS Safety Report 10234885 (Version 1)
Quarter: 2014Q1

REPORT INFORMATION
  Report Type: Spontaneous
  Country: US (occurrence: None)
  Receive Date: 20140306
  Receipt Date: 20140306
  Transmission Date: 20141002
  Serious: Yes (Disabling, Other)
  Sender: FDA-Public Use
  Company Number: 163-21880-13093050

PATIENT
  Age: 80 Year
  Sex: Male

DRUGS (4)
  1. REVLIMID (LENALIDOMIDE) (15 MILLIGRAM, CAPSULES) [Suspect]
     Indication: MYELODYSPLASTIC SYNDROME
     Route: 048
     Dates: start: 20130819
  2. SPRYCEL [Concomitant]
  3. CYTARABINE [Concomitant]
  4. PREDNISONE [Concomitant]

REACTIONS (1)
  - Thrombocytopenia [None]
